FAERS Safety Report 8541328 (Version 2)
Quarter: 2013Q2

REPORT INFORMATION
  Report Type: Spontaneous
  Country: JP (occurrence: JP)
  Receive Date: 20120502
  Receipt Date: 20130625
  Transmission Date: 20140414
  Serious: Yes (Hospitalization)
  Sender: FDA-Public Use
  Company Number: JP-GLAXOSMITHKLINE-B0528823A

PATIENT
  Age: 65 Year
  Sex: Male

DRUGS (15)
  1. PAXIL [Suspect]
     Indication: MAJOR DEPRESSION
     Dosage: 20MG PER DAY
     Route: 048
     Dates: start: 20080610, end: 20080612
  2. PAXIL [Suspect]
     Indication: MAJOR DEPRESSION
     Dosage: 40MG PER DAY
     Route: 048
     Dates: start: 20080613, end: 200806
  3. PAXIL [Suspect]
     Indication: MAJOR DEPRESSION
     Route: 048
     Dates: start: 200806, end: 20080623
  4. ZANTAC [Concomitant]
     Indication: DUODENAL ULCER
     Dosage: 150MG TWICE PER DAY
     Route: 048
  5. LENDORMIN [Concomitant]
     Indication: INSOMNIA
     Dosage: .25MG PER DAY
     Route: 048
  6. PURSENNID [Concomitant]
     Indication: CONSTIPATION
     Dosage: 24MG PER DAY
     Route: 048
  7. MAGNESIUM OXIDE [Concomitant]
     Indication: CONSTIPATION
     Dosage: 660MG THREE TIMES PER DAY
     Route: 048
  8. POLYFUL [Concomitant]
     Indication: CONSTIPATION
     Dosage: 500MG THREE TIMES PER DAY
     Route: 048
     Dates: start: 20080514
  9. ANAFRANIL [Concomitant]
     Indication: MAJOR DEPRESSION
     Dosage: 25MG PER DAY
     Route: 042
     Dates: start: 20080606, end: 20080608
  10. DILTIAZEM HYDROCHLORIDE [Concomitant]
     Route: 065
  11. FLUVOXAMINE MALEATE [Concomitant]
     Route: 048
  12. MILNACIPRAN HYDROCHLORIDE [Concomitant]
     Route: 048
  13. MILNACIPRAN HYDROCHLORIDE [Concomitant]
     Route: 048
  14. AMOXAPINE [Concomitant]
     Indication: MAJOR DEPRESSION
     Route: 048
  15. AMOXAPINE [Concomitant]
     Indication: MAJOR DEPRESSION
     Route: 048

REACTIONS (7)
  - Inappropriate antidiuretic hormone secretion [Recovered/Resolved]
  - Malaise [Unknown]
  - Dizziness [Unknown]
  - Asthenia [Unknown]
  - Blood sodium decreased [Unknown]
  - Blood osmolarity decreased [Unknown]
  - Hyponatraemia [Unknown]
